FAERS Safety Report 16833819 (Version 1)
Quarter: 2019Q3

REPORT INFORMATION
  Report Type: Spontaneous
  Country: US (occurrence: US)
  Receive Date: 20190920
  Receipt Date: 20190920
  Transmission Date: 20191005
  Serious: No
  Sender: FDA-Public Use
  Company Number: US-ADAMAS PHARMA, LLC-2019ADA01625

PATIENT
  Age: 72 Year
  Sex: Male
  Weight: 72.11 kg

DRUGS (8)
  1. GOCOVRI [Suspect]
     Active Substance: AMANTADINE
     Indication: DYSKINESIA
     Dosage: 137 MG, 1X/DAY AT BEDTIME FOR 7 DAYS
     Route: 048
     Dates: start: 20190712, end: 20190718
  2. FINASTERIDE. [Concomitant]
     Active Substance: FINASTERIDE
     Dosage: 5 MG, 1X/DAY
     Route: 048
  3. LISINOPRIL/HCTZ [Concomitant]
     Active Substance: HYDROCHLOROTHIAZIDE\LISINOPRIL
     Dosage: 1 DOSAGE UNITS, 1X/DAY
     Route: 048
  4. GOCOVRI [Suspect]
     Active Substance: AMANTADINE
     Dosage: 274 MG, 1X/DAY AT BEDTIME
     Route: 048
     Dates: start: 20190719
  5. VITAMIN D [Concomitant]
     Active Substance: VITAMIN D NOS
     Dosage: 200 UNK, 1X/DAY
     Route: 048
  6. ASPIRIN LOW DOSE [Concomitant]
     Active Substance: ASPIRIN
     Dosage: 81 MG, 1X/DAY
     Route: 048
  7. UNSPECIFIED LEVODOPA-BASED THERAPY [Concomitant]
  8. NEUPRO [Concomitant]
     Active Substance: ROTIGOTINE
     Dosage: 8 MG, 1X/DAY
     Route: 062

REACTIONS (2)
  - Bradykinesia [Not Recovered/Not Resolved]
  - Tremor [Not Recovered/Not Resolved]

NARRATIVE: CASE EVENT DATE: 201907
